FAERS Safety Report 8743795 (Version 3)
Quarter: 2013Q4

REPORT INFORMATION
  Report Type: Report from Study
  Country: BR (occurrence: BR)
  Receive Date: 20120824
  Receipt Date: 20131105
  Transmission Date: 20140711
  Serious: Yes (Other)
  Sender: FDA-Public Use
  Company Number: BR-ROCHE-1101071

PATIENT
  Age: 67 Year
  Sex: Female
  Weight: 77 kg

DRUGS (6)
  1. RITUXIMAB [Suspect]
     Indication: RHEUMATOID ARTHRITIS
     Route: 042
  2. HIDANTAL [Concomitant]
  3. REUQUINOL [Concomitant]
  4. PREDNISONE [Concomitant]
  5. ATORVASTATIN [Concomitant]
  6. DIOVAN [Concomitant]

REACTIONS (9)
  - Speech disorder [Recovered/Resolved]
  - Dizziness [Unknown]
  - Memory impairment [Unknown]
  - Headache [Unknown]
  - Dengue fever [Unknown]
  - Confusional state [Not Recovered/Not Resolved]
  - Memory impairment [Not Recovered/Not Resolved]
  - Dyspnoea [Recovered/Resolved]
  - Cystitis [Recovered/Resolved]
